FAERS Safety Report 15474890 (Version 1)
Quarter: 2018Q4

REPORT INFORMATION
  Report Type: Spontaneous
  Country: SI (occurrence: SI)
  Receive Date: 20181008
  Receipt Date: 20181008
  Transmission Date: 20190205
  Serious: Yes (Other)
  Sender: FDA-Public Use
  Company Number: SI-BAYER-2018-181288

PATIENT
  Sex: Male

DRUGS (3)
  1. DOXO [Concomitant]
     Dosage: 100 MG
     Dates: start: 201802
  2. NEXAVAR [Suspect]
     Active Substance: SORAFENIB
     Indication: HEPATOCELLULAR CARCINOMA
     Dosage: 200 MG, BID
     Dates: start: 201701, end: 2017
  3. NEXAVAR [Suspect]
     Active Substance: SORAFENIB
     Indication: HEPATOCELLULAR CARCINOMA
     Dosage: 400 MG, BID
     Dates: start: 2017, end: 201709

REACTIONS (6)
  - Pancytopenia [Recovering/Resolving]
  - Diarrhoea [None]
  - Performance status decreased [Recovering/Resolving]
  - Hepatocellular carcinoma [None]
  - Thrombocytopenia [None]
  - Bone marrow disorder [None]

NARRATIVE: CASE EVENT DATE: 2017
